FAERS Safety Report 4290344-9 (Version None)
Quarter: 2004Q1

REPORT INFORMATION
  Report Type: 
  Country: None (occurrence: None)
  Receive Date: 20040210
  Receipt Date: 20031127
  Transmission Date: 20041129
  Serious: Yes (Hospitalization)
  Sender: FDA-Public Use
  Company Number: PHBS2003JP13350

PATIENT
  Age: 77 Year
  Sex: Female
  Weight: 50 kg

DRUGS (4)
  1. GLEEVEC [Suspect]
     Indication: CHRONIC MYELOID LEUKAEMIA
     Dosage: 400 MG, QD
     Route: 048
     Dates: start: 20030828, end: 20030928
  2. GLEEVEC [Suspect]
     Dosage: UNK, UNK
     Route: 048
     Dates: start: 20030929, end: 20031014
  3. ZYLORIC ^FAES^ [Concomitant]
  4. GASTER [Concomitant]

REACTIONS (3)
  - APLASTIC ANAEMIA [None]
  - MALAISE [None]
  - PANCYTOPENIA [None]
